FAERS Safety Report 24125682 (Version 2)
Quarter: 2024Q3

REPORT INFORMATION
  Report Type: Spontaneous
  Country: US (occurrence: US)
  Receive Date: 20240723
  Receipt Date: 20240821
  Transmission Date: 20241017
  Serious: No
  Sender: ROCHE
  Company Number: US-ROCHE-10000026464

PATIENT
  Sex: Male
  Weight: 52.16 kg

DRUGS (1)
  1. NUTROPIN [Suspect]
     Active Substance: SOMATROPIN
     Indication: Small for dates baby
     Route: 058

REACTIONS (2)
  - No adverse event [Unknown]
  - Off label use [Unknown]
